FAERS Safety Report 5151892-2 (Version None)
Quarter: 2006Q4

REPORT INFORMATION
  Report Type: 
  Country: None (occurrence: None)
  Receive Date: 20061115
  Receipt Date: 20061108
  Transmission Date: 20070319
  Serious: Yes (Disabling, Other)
  Sender: FDA-Public Use
  Company Number: GB-ALLERGAN-0607269US

PATIENT
  Age: 72 Year
  Sex: Male

DRUGS (4)
  1. PREDNISOLONE ACETATE [Suspect]
     Indication: KERATITIS HERPETIC
     Dates: start: 20040601
  2. TIMOLOL MALEATE SOL UNSPECIFID [Suspect]
     Indication: KERATITIS HERPETIC
     Dosage: UNK, BID
     Dates: start: 20040601
  3. ACYCLOVIR [Concomitant]
     Indication: KERATITIS HERPETIC
     Dosage: 5 DF, UNK
     Dates: start: 20040601
  4. DIAMOX /00016901/ [Concomitant]
     Indication: KERATITIS HERPETIC
     Dates: start: 20040601

REACTIONS (2)
  - BLINDNESS [None]
  - CORNEAL DEPOSITS [None]
